FAERS Safety Report 16009645 (Version 1)
Quarter: 2019Q1

REPORT INFORMATION
  Report Type: Spontaneous
  Country: US (occurrence: US)
  Receive Date: 20190226
  Receipt Date: 20190226
  Transmission Date: 20190418
  Serious: No
  Sender: FDA-Public Use
  Company Number: US-AUROBINDO-AUR-APU-2018-029321

PATIENT
  Sex: Female

DRUGS (1)
  1. VALSARTAN 80MG [Suspect]
     Active Substance: VALSARTAN
     Indication: HYPERTENSION
     Dosage: 80 MILLIGRAM, ONCE A DAY
     Route: 048

REACTIONS (4)
  - Product substitution issue [Unknown]
  - Depressed mood [Unknown]
  - Nausea [Unknown]
  - Headache [Unknown]
